FAERS Safety Report 8583766-9 (Version None)
Quarter: 2012Q3

REPORT INFORMATION
  Report Type: 
  Country: None (occurrence: None)
  Receive Date: 20120810
  Receipt Date: 20120725
  Transmission Date: 20120928
  Serious: Yes (Hospitalization, Other)
  Sender: FDA-Public Use
  Company Number: US-009507513-2011SP043796

PATIENT

DRUGS (2)
  1. NUVARING [Suspect]
     Indication: CONTRACEPTION
     Dates: start: 20060625, end: 20091002
  2. NUVARING [Suspect]
     Indication: MENSTRUAL CYCLE MANAGEMENT
     Dates: start: 20060706, end: 20090929

REACTIONS (17)
  - LIGAMENT SPRAIN [None]
  - OVARIAN CYST [None]
  - MICTURITION URGENCY [None]
  - VAGINAL INFECTION [None]
  - MIGRAINE [None]
  - HEADACHE [None]
  - PULMONARY EMBOLISM [None]
  - KERATOMILEUSIS [None]
  - VISION BLURRED [None]
  - MUSCLE SPASMS [None]
  - LIMB DISCOMFORT [None]
  - DEPRESSION [None]
  - CYST [None]
  - ARTHROPATHY [None]
  - CONJUNCTIVITIS [None]
  - WEIGHT INCREASED [None]
  - AMENORRHOEA [None]
